FAERS Safety Report 24413341 (Version 3)
Quarter: 2024Q4

REPORT INFORMATION
  Report Type: Spontaneous
  Country: US (occurrence: US)
  Receive Date: 20241008
  Receipt Date: 20241023
  Transmission Date: 20250114
  Serious: Yes (Hospitalization)
  Sender: DOMPE FARMACEUTICI
  Company Number: US-FARMAPROD-202409-3171

PATIENT
  Age: 82 Year
  Sex: Female

DRUGS (10)
  1. OXERVATE [Suspect]
     Active Substance: CENEGERMIN-BKBJ
     Indication: Neurotrophic keratopathy
     Route: 047
     Dates: start: 20240829
  2. OXERVATE [Suspect]
     Active Substance: CENEGERMIN-BKBJ
  3. B12 ACTIVE [Concomitant]
  4. VITAMIN D3 [Concomitant]
     Active Substance: CHOLECALCIFEROL
  5. MIRALAX [Concomitant]
     Active Substance: POLYETHYLENE GLYCOL 3350
     Dosage: 17 GRAM / DOSE
  6. IVIZIA [Concomitant]
     Active Substance: POVIDONE
  7. PREDNISOLONE-BROMFENAC [Concomitant]
  8. OFLOXACIN [Concomitant]
     Active Substance: OFLOXACIN
  9. LEVOTHYROXINE SODIUM [Concomitant]
     Active Substance: LEVOTHYROXINE SODIUM
  10. ELIQUIS [Concomitant]
     Active Substance: APIXABAN

REACTIONS (18)
  - Cardiac disorder [Unknown]
  - Dizziness [Unknown]
  - Eye pain [Not Recovered/Not Resolved]
  - Erythema of eyelid [Unknown]
  - Asthenopia [Not Recovered/Not Resolved]
  - Photophobia [Unknown]
  - Visual impairment [Unknown]
  - Headache [Unknown]
  - Nausea [Unknown]
  - Ocular hyperaemia [Not Recovered/Not Resolved]
  - Blood pressure increased [Unknown]
  - Eye irritation [Unknown]
  - Muscular weakness [Unknown]
  - Gastrointestinal motility disorder [Unknown]
  - Foreign body sensation in eyes [Unknown]
  - Swelling of eyelid [Unknown]
  - Eyelid margin crusting [Unknown]
  - Lacrimation increased [Unknown]

NARRATIVE: CASE EVENT DATE: 20240925
